FAERS Safety Report 9289642 (Version 3)
Quarter: 2013Q3

REPORT INFORMATION
  Report Type: Spontaneous
  Country: US (occurrence: US)
  Receive Date: 20130515
  Receipt Date: 20130722
  Transmission Date: 20140515
  Serious: No
  Sender: FDA-Public Use
  Company Number: US-BIOGENIDEC-2013BI041768

PATIENT
  Sex: Female

DRUGS (1)
  1. TYSABRI [Suspect]
     Indication: MULTIPLE SCLEROSIS
     Route: 042
     Dates: start: 20110628, end: 20130411

REACTIONS (14)
  - Gait disturbance [Not Recovered/Not Resolved]
  - Peroneal nerve palsy [Not Recovered/Not Resolved]
  - Fall [Recovered/Resolved]
  - Arthropathy [Not Recovered/Not Resolved]
  - Insomnia [Not Recovered/Not Resolved]
  - Muscle twitching [Not Recovered/Not Resolved]
  - Poor venous access [Not Recovered/Not Resolved]
  - Musculoskeletal stiffness [Unknown]
  - Muscle spasms [Unknown]
  - Dyskinesia [Unknown]
  - Contusion [Recovered/Resolved]
  - Injection site scar [Unknown]
  - Fear [Not Recovered/Not Resolved]
  - Loss of control of legs [Not Recovered/Not Resolved]
